FAERS Safety Report 4403388-0 (Version None)
Quarter: 2004Q3

REPORT INFORMATION
  Report Type: 
  Country: None (occurrence: None)
  Receive Date: 20040715
  Receipt Date: 20040702
  Transmission Date: 20050211
  Serious: Yes (Hospitalization, Disabling, Other)
  Sender: FDA-Public Use
  Company Number: 2004032185

PATIENT
  Sex: Female

DRUGS (11)
  1. DILANTIN KAPSEAL [Suspect]
     Indication: CONVULSION
     Dosage: 300 MG (100 MG, 2 IN 1 D), ORAL
     Route: 048
  2. ALL OTHER NON-THERAPEUTIC PRODUCTS (ALL OTHER NON-THERAPEUTIC PRODUCTS [Suspect]
     Indication: ILL-DEFINED DISORDER
     Dosage: ORAL
     Route: 048
  3. CALCITONIN, SALMON (CALCITONIN, SALMON) [Concomitant]
  4. MULTIVITAMINS (ASCORBIV ACID, ERGOCALCIFEROL, FOLIC ACID, NICOTINAMIDE [Concomitant]
  5. ARTHROTEC [Concomitant]
  6. CALCIUM D SAUTER (ASCORBIC ACID, CALCIUM GLUCONATE, CALCUIM LACTATE, C [Concomitant]
  7. MAGNESIUM HYDROXIDE (MAGNESIUM HYDOXIDE) [Concomitant]
  8. ALL OTHER THERAPEUTIC PRODUCTS (ALL OTHER THERAPEUTIC) [Concomitant]
  9. CHLORHEXIDINE (CHLORHEXIDINE) [Concomitant]
  10. ASPIRIN [Concomitant]
  11. FLUOCINOLONE ACETONIDE (FLUOCINOLONE ACETONIDE) [Concomitant]

REACTIONS (13)
  - ANTICONVULSANT DRUG LEVEL DECREASED [None]
  - ASTHENIA [None]
  - CEREBROVASCULAR ACCIDENT [None]
  - CONFUSIONAL STATE [None]
  - CORONARY ARTERY INSUFFICIENCY [None]
  - FOOD INTERACTION [None]
  - LYMPHOEDEMA [None]
  - MEDICATION ERROR [None]
  - MENTAL RETARDATION SEVERITY UNSPECIFIED [None]
  - OSTEOARTHRITIS [None]
  - OSTEOPOROSIS [None]
  - SCHIZOPHRENIA [None]
  - TREMOR [None]
